FAERS Safety Report 7552400-9 (Version None)
Quarter: 2011Q2

REPORT INFORMATION
  Report Type: 
  Country: None (occurrence: None)
  Receive Date: 20110616
  Receipt Date: 20110527
  Transmission Date: 20111010
  Serious: Yes (Other)
  Sender: FDA-Public Use
  Company Number: PHHY2011JP51562

PATIENT
  Sex: Male
  Weight: 66 kg

DRUGS (4)
  1. JANUVIA [Concomitant]
     Dosage: 50 MG, UNK
     Route: 048
     Dates: start: 20091223, end: 20101104
  2. DIOVAN HCT [Suspect]
     Indication: HYPERTENSION
     Dosage: 1 DFDAILY
     Route: 048
     Dates: start: 20091211, end: 20101104
  3. AMARYL [Concomitant]
     Dosage: 4 MG, UNK
     Route: 048
     Dates: start: 20041019, end: 20101104
  4. CELLCEPT [Concomitant]
     Dosage: 5 MG, UNK
     Route: 048
     Dates: start: 20091213, end: 20101104

REACTIONS (4)
  - BLOOD PRESSURE SYSTOLIC INCREASED [None]
  - BLOOD PRESSURE INADEQUATELY CONTROLLED [None]
  - DIABETES MELLITUS [None]
  - HAEMATEMESIS [None]
